FAERS Safety Report 8201169-3 (Version None)
Quarter: 2012Q1

REPORT INFORMATION
  Report Type: 
  Country: None (occurrence: None)
  Receive Date: 20120312
  Receipt Date: 20120302
  Transmission Date: 20120608
  Serious: Yes (Other)
  Sender: FDA-Public Use
  Company Number: PHHY2012BR019188

PATIENT
  Sex: Female
  Weight: 49 kg

DRUGS (5)
  1. SANDIMMUNE [Suspect]
     Indication: IMMUNOSUPPRESSION
     Dosage: 50 MG, QD
     Dates: start: 19960201, end: 20101201
  2. CERTICAN [Suspect]
     Dosage: 1 MG, 1 CAPSULE AT MORNING, 1 AT NIGHT
     Route: 048
     Dates: start: 20101201
  3. ATENOLOL [Concomitant]
     Indication: HYPERTENSION
     Dosage: 50 MG, QD
     Route: 048
  4. MYFORTIC [Suspect]
     Indication: IMMUNOSUPPRESSION
     Route: 048
  5. LOSARTAN POTASSIUM [Concomitant]
     Indication: HYPERTENSION
     Dosage: 50 MG, QD (1 TABLET)
     Route: 048

REACTIONS (3)
  - BLOOD PRESSURE INCREASED [None]
  - RENAL FAILURE ACUTE [None]
  - RENAL IMPAIRMENT [None]
